FAERS Safety Report 8357862-5 (Version None)
Quarter: 2012Q2

REPORT INFORMATION
  Report Type: 
  Country: None (occurrence: None)
  Receive Date: 20120514
  Receipt Date: 20110906
  Transmission Date: 20120825
  Serious: No
  Sender: FDA-Public Use
  Company Number: US-TEVA-2011004669

PATIENT
  Sex: Male
  Weight: 104.42 kg

DRUGS (6)
  1. NUVIGIL [Suspect]
     Indication: SLEEP DISORDER
     Dosage: 250 MILLIGRAM;
     Route: 048
     Dates: start: 20100301, end: 20110801
  2. SYNTHROID [Concomitant]
  3. TRAMADOL HYDROCHLORIDE [Concomitant]
  4. AMLODIPINE BESYLATE [Concomitant]
  5. TRIAMTERENE [Concomitant]
  6. DICLOFENAC SODIUM [Concomitant]
     Dates: start: 20100101

REACTIONS (4)
  - ANGER [None]
  - FRUSTRATION [None]
  - DRUG INEFFECTIVE [None]
  - IRRITABILITY [None]
